FAERS Safety Report 8590367-5 (Version None)
Quarter: 2012Q3

REPORT INFORMATION
  Report Type: 
  Country: None (occurrence: None)
  Receive Date: 20120813
  Receipt Date: 20120809
  Transmission Date: 20120928
  Serious: Yes (Life-Threatening)
  Sender: FDA-Public Use
  Company Number: GR-CELGENEUS-066-C5013-12080581

PATIENT
  Sex: Female
  Weight: 65 kg

DRUGS (6)
  1. MELPHALAN HYDROCHLORIDE [Suspect]
     Indication: MULTIPLE MYELOMA
     Dosage: 16 MILLIGRAM
     Route: 065
     Dates: start: 20090128, end: 20090507
  2. PREDNISONE TAB [Suspect]
     Indication: MULTIPLE MYELOMA
     Dosage: 155 MILLIGRAM
     Route: 065
     Dates: start: 20090128, end: 20090507
  3. THALIDOMIDE [Suspect]
     Indication: MULTIPLE MYELOMA
     Dosage: 100 MILLIGRAM
     Route: 048
     Dates: start: 20090128
  4. DEXAMETHASONE [Concomitant]
     Indication: MYELOMA RECURRENCE
     Route: 065
  5. BORTEZOMIB [Concomitant]
     Indication: MYELOMA RECURRENCE
     Route: 065
  6. PANOBINOSTAT [Concomitant]
     Indication: MYELOMA RECURRENCE
     Route: 065

REACTIONS (1)
  - ENDOMETRIAL CANCER [None]
